FAERS Safety Report 9405383 (Version 4)
Quarter: 2013Q3

REPORT INFORMATION
  Report Type: Report from Study
  Country: DE (occurrence: DE)
  Receive Date: 20130717
  Receipt Date: 20130820
  Transmission Date: 20140515
  Serious: Yes (Hospitalization)
  Sender: FDA-Public Use
  Company Number: DE-UCBSA-091630

PATIENT
  Age: 72 Year
  Sex: Female
  Weight: 72 kg

DRUGS (19)
  1. CIMZIA [Suspect]
     Indication: RHEUMATOID ARTHRITIS
     Dosage: 20 DOSES RECIEVED
     Route: 058
     Dates: start: 20120620, end: 20130422
  2. METHOTREXATE [Concomitant]
     Dosage: 10
  3. SPIRONALACTONE [Concomitant]
     Dosage: 25
  4. PREDNISOLONE [Concomitant]
     Dosage: 5 MG
  5. TARGIN [Concomitant]
     Dosage: 20/10
  6. BISOPROLOL [Concomitant]
     Dosage: 2.5
  7. SIMVASTATIN [Concomitant]
     Dosage: 20
  8. PROTELOS [Concomitant]
     Dosage: 2.0
  9. KALINOR [Concomitant]
  10. FALITHROM [Concomitant]
  11. PANTOZOL [Concomitant]
     Dosage: 40
  12. NOVALGIN [Concomitant]
     Dosage: 500
  13. FOLSAN [Concomitant]
  14. KLACID [Concomitant]
     Dosage: 500
  15. ACC [Concomitant]
     Dosage: 200
  16. ENOXAPARIN [Concomitant]
     Dosage: 0.8
     Route: 058
  17. PHENPROCOUMON [Concomitant]
  18. TORASEMIDE [Concomitant]
     Dosage: 10
  19. OXYCODONE [Concomitant]
     Dosage: 20

REACTIONS (1)
  - Bronchopneumonia [Recovered/Resolved]
